FAERS Safety Report 18187408 (Version 1)
Quarter: 2020Q3

REPORT INFORMATION
  Report Type: Report from Study
  Country: None (occurrence: CO)
  Receive Date: 20200824
  Receipt Date: 20200824
  Transmission Date: 20201103
  Serious: Yes (Other)
  Sender: FDA-Public Use
  Company Number: CO-ABBVIE-20K-036-3536481-00

PATIENT
  Sex: Female
  Weight: 60 kg

DRUGS (3)
  1. ZEMPLAR [Suspect]
     Active Substance: PARICALCITOL
     Indication: CHRONIC KIDNEY DISEASE
  2. ZEMPLAR [Suspect]
     Active Substance: PARICALCITOL
     Indication: HYPERPARATHYROIDISM SECONDARY
     Route: 048
     Dates: start: 20190603
  3. INSULIN [Concomitant]
     Active Substance: INSULIN NOS
     Indication: BLOOD GLUCOSE
     Route: 058

REACTIONS (7)
  - Catheter site haemorrhage [Recovering/Resolving]
  - Gait disturbance [Recovering/Resolving]
  - Mood altered [Recovering/Resolving]
  - Blood glucose increased [Recovering/Resolving]
  - Pain [Recovering/Resolving]
  - Blood pressure increased [Recovering/Resolving]
  - Haemoglobin decreased [Recovering/Resolving]
